FAERS Safety Report 5911945-5 (Version None)
Quarter: 2008Q4

REPORT INFORMATION
  Report Type: 
  Country: None (occurrence: None)
  Receive Date: 20081008
  Receipt Date: 20080930
  Transmission Date: 20090506
  Serious: Yes (Hospitalization, Other)
  Sender: FDA-Public Use
  Company Number: PHHY2008JP19516

PATIENT
  Sex: Female
  Weight: 67 kg

DRUGS (2)
  1. ZOMETA [Suspect]
     Indication: METASTASES TO BONE
     Dosage: 4 MG (SINGLE DOSE)
     Route: 042
     Dates: start: 20080702, end: 20080702
  2. PICIBANIL [Suspect]
     Dosage: 10 KE
     Route: 034
     Dates: start: 20080702, end: 20080702

REACTIONS (16)
  - BASE EXCESS [None]
  - BLOOD BICARBONATE DECREASED [None]
  - BLOOD CHLORIDE DECREASED [None]
  - BLOOD CREATININE INCREASED [None]
  - BLOOD POTASSIUM ABNORMAL [None]
  - BLOOD UREA INCREASED [None]
  - CENTRAL VENOUS PRESSURE INCREASED [None]
  - DYSPNOEA [None]
  - MALIGNANT PLEURAL EFFUSION [None]
  - MEAN CELL HAEMOGLOBIN INCREASED [None]
  - MEAN CELL VOLUME INCREASED [None]
  - PLATELET COUNT INCREASED [None]
  - RED BLOOD CELL COUNT DECREASED [None]
  - RENAL FAILURE ACUTE [None]
  - THORACIC CAVITY DRAINAGE [None]
  - URINE OUTPUT DECREASED [None]
